FAERS Safety Report 24335662 (Version 1)
Quarter: 2024Q3

REPORT INFORMATION
  Report Type: Spontaneous
  Country: CN (occurrence: CN)
  Receive Date: 20240919
  Receipt Date: 20240919
  Transmission Date: 20241016
  Serious: Yes (Other)
  Sender: BEIGENE
  Company Number: CN-BEIGENE-BGN-2024-014464

PATIENT

DRUGS (4)
  1. TISLELIZUMAB [Suspect]
     Active Substance: TISLELIZUMAB
     Indication: Bile duct cancer
     Dosage: 200 MILLIGRAM, Q3WK D9
     Route: 041
     Dates: start: 20240821
  2. CAPECITABINE [Suspect]
     Active Substance: CAPECITABINE
     Indication: Bile duct cancer
     Dosage: 1 GRAM D1-14 BID Q3WK
     Route: 048
     Dates: start: 20240813
  3. GEMCITABINE HYDROCHLORIDE [Suspect]
     Active Substance: GEMCITABINE HYDROCHLORIDE
     Indication: Bile duct cancer
     Dosage: 1.2 GRAM D1 D8
     Route: 041
     Dates: start: 20240813
  4. DONAFENIB [Concomitant]
     Active Substance: DONAFENIB
     Indication: Bile duct cancer
     Dosage: 1 BID
     Dates: start: 20240813

REACTIONS (1)
  - Myelosuppression [Unknown]

NARRATIVE: CASE EVENT DATE: 20240904
